FAERS Safety Report 6623528-2 (Version None)
Quarter: 2010Q1

REPORT INFORMATION
  Report Type: 
  Country: None (occurrence: None)
  Receive Date: 20100310
  Receipt Date: 20100223
  Transmission Date: 20100710
  Serious: No
  Sender: FDA-Public Use
  Company Number: US-ROXANE LABORATORIES, INC.-2010-RO-00192RO

PATIENT
  Sex: Female

DRUGS (2)
  1. PREDNISONE [Suspect]
     Indication: ASTHMA
  2. ADVAIR DISKUS 100/50 [Concomitant]

REACTIONS (2)
  - DRUG INEFFECTIVE [None]
  - DRUG RESISTANCE [None]
